FAERS Safety Report 20451649 (Version 2)
Quarter: 2022Q1

REPORT INFORMATION
  Report Type: Spontaneous
  Country: IT (occurrence: IT)
  Receive Date: 20220209
  Receipt Date: 20220330
  Transmission Date: 20220423
  Serious: Yes (Other)
  Sender: FDA-Public Use
  Company Number: None

PATIENT
  Age: 53 Year
  Sex: Male

DRUGS (1)
  1. LIBTAYO [Suspect]
     Active Substance: CEMIPLIMAB-RWLC
     Indication: Squamous cell carcinoma of skin
     Dosage: 350 MG,CYCLIC
     Route: 042
     Dates: start: 20210810, end: 20210923

REACTIONS (4)
  - Haemorrhage [Recovered/Resolved]
  - Enterocolitis haemorrhagic [Recovered/Resolved]
  - Productive cough [Recovered/Resolved]
  - Colitis [Recovered/Resolved]

NARRATIVE: CASE EVENT DATE: 20211001
